FAERS Safety Report 4577262-3 (Version None)
Quarter: 2005Q1

REPORT INFORMATION
  Report Type: 
  Country: None (occurrence: None)
  Receive Date: 20050209
  Receipt Date: 20050124
  Transmission Date: 20050727
  Serious: Yes (Other)
  Sender: FDA-Public Use
  Company Number: TRP_0061_2005

PATIENT
  Age: 29 Year
  Sex: Female
  Weight: 88.4514 kg

DRUGS (8)
  1. RIBASPHERE [Suspect]
     Indication: HEPATITIS C
     Dates: start: 20041122
  2. PEG-INTRON [Suspect]
     Indication: HEPATITIS C
     Dosage: DF SC
     Route: 058
     Dates: start: 20041122
  3. ELAVIL [Concomitant]
  4. HYOSCYAMINE SULFATE [Concomitant]
  5. ZANTAC [Concomitant]
  6. SONATA [Concomitant]
  7. XANAX [Concomitant]
  8. ULTRAM [Concomitant]

REACTIONS (2)
  - THYROID DISORDER [None]
  - WEIGHT DECREASED [None]
